FAERS Safety Report 22921452 (Version 2)
Quarter: 2024Q3

REPORT INFORMATION
  Report Type: Spontaneous
  Country: US (occurrence: None)
  Receive Date: 20230908
  Receipt Date: 20240906
  Transmission Date: 20241016
  Serious: No
  Sender: DOMPE FARMACEUTICI
  Company Number: US-FARMAPROD-202306-1867

PATIENT
  Age: 90 Year
  Sex: Male

DRUGS (9)
  1. OXERVATE [Suspect]
     Active Substance: CENEGERMIN-BKBJ
     Indication: Neurotrophic keratopathy
     Route: 047
     Dates: start: 20230616
  2. OXERVATE [Suspect]
     Active Substance: CENEGERMIN-BKBJ
  3. ATORVASTATIN CALCIUM [Concomitant]
     Active Substance: ATORVASTATIN CALCIUM
  4. DEXAMETHASONE\NEOMYCIN\POLYMYXIN B SULFATE [Concomitant]
     Active Substance: DEXAMETHASONE\NEOMYCIN\POLYMYXIN B SULFATE
  5. LEVOTHYROXINE SODIUM [Concomitant]
     Active Substance: LEVOTHYROXINE SODIUM
  6. DONEPEZIL HYDROCHLORIDE [Concomitant]
     Active Substance: DONEPEZIL HYDROCHLORIDE
  7. ASPIRIN [Concomitant]
     Active Substance: ASPIRIN
  8. MIRTAZAPINE [Concomitant]
     Active Substance: MIRTAZAPINE
  9. MECLIZINE HYDROCHLORIDE [Concomitant]
     Active Substance: MECLIZINE HYDROCHLORIDE

REACTIONS (2)
  - Eye pain [Not Recovered/Not Resolved]
  - Ocular discomfort [Unknown]

NARRATIVE: CASE EVENT DATE: 20230601
